FAERS Safety Report 7343870-X (Version None)
Quarter: 2011Q1

REPORT INFORMATION
  Report Type: 
  Country: None (occurrence: None)
  Receive Date: 20110310
  Receipt Date: 20110225
  Transmission Date: 20110831
  Serious: Yes (Death, Hospitalization)
  Sender: FDA-Public Use
  Company Number: PHHY2011SA17681

PATIENT
  Age: 41 Year
  Sex: Male

DRUGS (6)
  1. ACTIVASE [Suspect]
     Dosage: 15 MG, UNK
     Route: 040
  2. ACTIVASE [Suspect]
     Dosage: 35 MG, 60 MIN
  3. CLOPIDOGREL [Suspect]
     Dosage: 300 MG, UNK
  4. ACTIVASE [Suspect]
     Dosage: 50 MG, FOR 30 MIN
  5. ENOXAPARIN [Suspect]
     Dosage: 30 MG, UNK
     Route: 042
  6. ASPIRIN [Suspect]
     Dosage: 325 MG, UNK
     Route: 048

REACTIONS (15)
  - VENTRICULAR HYPOKINESIA [None]
  - BLOOD CREATINE PHOSPHOKINASE INCREASED [None]
  - CEREBRAL INFARCTION [None]
  - TROPONIN I INCREASED [None]
  - BLOOD LACTATE DEHYDROGENASE INCREASED [None]
  - CONFUSIONAL STATE [None]
  - INTRACARDIAC THROMBUS [None]
  - BLOOD FIBRINOGEN DECREASED [None]
  - FIBRIN D DIMER INCREASED [None]
  - EJECTION FRACTION DECREASED [None]
  - CEREBRAL HAEMORRHAGE [None]
  - RENAL INFARCT [None]
  - DILATATION VENTRICULAR [None]
  - LOSS OF CONSCIOUSNESS [None]
  - GENERAL PHYSICAL HEALTH DETERIORATION [None]
